FAERS Safety Report 22114880 (Version 2)
Quarter: 2023Q1

REPORT INFORMATION
  Report Type: Report from Study
  Country: US (occurrence: US)
  Receive Date: 20230320
  Receipt Date: 20230327
  Transmission Date: 20230418
  Serious: No
  Sender: FDA-Public Use
  Company Number: US-002147023-NVSC2023US060280

PATIENT
  Sex: Female

DRUGS (1)
  1. XIIDRA [Suspect]
     Active Substance: LIFITEGRAST
     Indication: Product used for unknown indication
     Dosage: UNK, (5% 50MG/ML)
     Route: 047

REACTIONS (7)
  - COVID-19 [Recovering/Resolving]
  - Speech disorder [Unknown]
  - Glossodynia [Unknown]
  - Pain [Unknown]
  - Salivary gland calculus [Unknown]
  - Dysphagia [Unknown]
  - Mastication disorder [Unknown]
